FAERS Safety Report 8067932-7 (Version None)
Quarter: 2012Q1

REPORT INFORMATION
  Report Type: 
  Country: None (occurrence: None)
  Receive Date: 20120124
  Receipt Date: 20110921
  Transmission Date: 20120608
  Serious: No
  Sender: FDA-Public Use
  Company Number: US-AMGEN-USASP2011042960

PATIENT
  Age: 75 Year
  Sex: Female

DRUGS (5)
  1. SIMVASTATIN [Concomitant]
     Dosage: UNK
  2. FISH OIL [Concomitant]
  3. PROLIA [Suspect]
     Indication: OSTEOPOROSIS POSTMENOPAUSAL
     Dates: start: 20110614
  4. CITRACAL                           /00471001/ [Concomitant]
     Dosage: 1 MG, UNK
  5. VITAMINS                           /90003601/ [Concomitant]

REACTIONS (1)
  - GINGIVAL RECESSION [None]
